FAERS Safety Report 4492560-X (Version None)
Quarter: 2004Q4

REPORT INFORMATION
  Report Type: 
  Country: None (occurrence: None)
  Receive Date: 20041029
  Receipt Date: 20041018
  Transmission Date: 20050328
  Serious: Yes (Hospitalization)
  Sender: FDA-Public Use
  Company Number: 209736

PATIENT
  Age: 65 Year
  Sex: Female

DRUGS (7)
  1. HERCEPTIN [Suspect]
     Indication: BREAST CANCER
     Dosage: SEE IMAGE
     Dates: start: 20040628, end: 20040628
  2. CYCLOSPHOPAMIDE (CYCLOSPHOSPHAMIDE) [Concomitant]
  3. DOXORUBICIN (DOXORUBICIN HYDROCHLORIDE, DOXORUBICIN) [Concomitant]
  4. DOCETAXEL (DOCETAXEL) [Concomitant]
  5. ZOFRAN [Concomitant]
  6. DEXAMETHASONE [Concomitant]
  7. ONDANSETRON HCL [Concomitant]

REACTIONS (6)
  - ANGIOPATHY [None]
  - CAROTID ARTERY STENOSIS [None]
  - DIZZINESS [None]
  - HEADACHE [None]
  - HYPERTENSION [None]
  - HYPERTONIA [None]
